FAERS Safety Report 8329222-4 (Version None)
Quarter: 2012Q2

REPORT INFORMATION
  Report Type: 
  Country: None (occurrence: None)
  Receive Date: 20120502
  Receipt Date: 20120419
  Transmission Date: 20120825
  Serious: No
  Sender: FDA-Public Use
  Company Number: DE-UCBSA-031901

PATIENT
  Age: 9 Year
  Sex: Female

DRUGS (13)
  1. DIPHENHYDRAMINE HCL [Concomitant]
  2. MIDAZOLAM HCL [Concomitant]
     Dosage: UNKNOWN DOSE
  3. LACOSAMIDE [Suspect]
     Indication: STATUS EPILEPTICUS
     Dosage: 16 MG/KG BW/D
     Route: 042
  4. FENTANYL [Concomitant]
     Dosage: UNKNOWN DOSE
  5. PHENOBARBITAL TAB [Concomitant]
     Dosage: DOSE REDUCED
  6. FENTANYL [Concomitant]
     Dosage: DOSE REDUCED
  7. PROPOFOL [Concomitant]
     Dosage: UNKNOWN DOSE
  8. MIDAZOLAM HCL [Concomitant]
     Dosage: DOSE REDUCED
  9. LACOSAMIDE [Suspect]
     Dosage: 6 MG/KG BW/DAY
     Route: 042
  10. LACOSAMIDE [Suspect]
     Dosage: 6 MG/KG BW/D
     Route: 042
  11. LEVETIRACETAM [Concomitant]
  12. PHENOBARBITAL TAB [Concomitant]
     Dosage: UNKNOWN DOSE
  13. PROPOFOL [Concomitant]
     Dosage: DOSE REDUCED

REACTIONS (2)
  - THERAPEUTIC RESPONSE UNEXPECTED [None]
  - FATIGUE [None]
